FAERS Safety Report 4868937-7 (Version None)
Quarter: 2005Q4

REPORT INFORMATION
  Report Type: 
  Country: None (occurrence: None)
  Receive Date: 20051229
  Receipt Date: 20051219
  Transmission Date: 20060501
  Serious: Yes (Life-Threatening, Hospitalization)
  Sender: FDA-Public Use
  Company Number: FR-MERCK-0512FRA00075

PATIENT
  Age: 71 Year
  Sex: Female

DRUGS (2)
  1. ZETIA [Suspect]
     Indication: HYPERCHOLESTEROLAEMIA
     Route: 048
     Dates: start: 20051001, end: 20051101
  2. [THERAPY UNSPECIFIED] [Concomitant]
     Route: 048

REACTIONS (4)
  - BRADYCARDIA [None]
  - DIALYSIS [None]
  - HYPERKALAEMIA [None]
  - MALAISE [None]
